FAERS Safety Report 9379937 (Version 1)
Quarter: 2013Q3

REPORT INFORMATION
  Report Type: Spontaneous
  Country: US (occurrence: None)
  Receive Date: 20130701
  Receipt Date: 20130701
  Transmission Date: 20140515
  Serious: Yes (Other)
  Sender: FDA-Public Use
  Company Number: None

PATIENT
  Age: 56 Year
  Sex: Female
  Weight: 68.04 kg

DRUGS (1)
  1. SUPREP [Suspect]
     Indication: COLONOSCOPY
     Dosage: 250 MG PER 500 ML OR 1 G) 17.5G/3/13G/1.6G PER 6 OUNCES ?2  6 OUNCE BOTTLES?AT 8AM AND 6OM PRIOR TO PROCEDURE ?ORAL
     Route: 048
     Dates: start: 20130616, end: 20130616

REACTIONS (1)
  - Drug effect decreased [None]
